FAERS Safety Report 7967532-0 (Version None)
Quarter: 2011Q4

REPORT INFORMATION
  Report Type: 
  Country: None (occurrence: None)
  Receive Date: 20111209
  Receipt Date: 20111129
  Transmission Date: 20120403
  Serious: Yes (Hospitalization, Other)
  Sender: FDA-Public Use
  Company Number: US-JNJFOC-NSADSS2002045614

PATIENT
  Age: 50 Year
  Sex: Female

DRUGS (3)
  1. METHOTREXATE [Concomitant]
  2. REMICADE [Suspect]
     Indication: RHEUMATOID ARTHRITIS
     Route: 041
  3. REMICADE [Suspect]
     Indication: TAKAYASU'S ARTERITIS
     Route: 041

REACTIONS (6)
  - RHEUMATOID ARTHRITIS [None]
  - ABSCESS [None]
  - LEGIONELLA INFECTION [None]
  - PNEUMONIA LEGIONELLA [None]
  - CONDITION AGGRAVATED [None]
  - DISEASE RECURRENCE [None]
